FAERS Safety Report 21285190 (Version 1)
Quarter: 2022Q3

REPORT INFORMATION
  Report Type: Spontaneous
  Country: US (occurrence: None)
  Receive Date: 20220901
  Receipt Date: 20220901
  Transmission Date: 20221026
  Serious: No
  Sender: FDA-Public Use
  Company Number: None

PATIENT
  Age: 80 Year
  Sex: Female
  Weight: 65.32 kg

DRUGS (3)
  1. ACTEMRA [Suspect]
     Active Substance: TOCILIZUMAB
     Indication: Osteoarthritis
     Dosage: INJECT 276MG INTRAVENOUSLY OVER 1 HOUR EVERY  4 WEEKS AS DIRECTED?
     Route: 042
     Dates: start: 202205
  2. ACTEMRA [Suspect]
     Active Substance: TOCILIZUMAB
     Indication: Osteoarthritis
  3. ACTEMRA [Suspect]
     Active Substance: TOCILIZUMAB
     Indication: Rheumatoid arthritis

REACTIONS (1)
  - Upper respiratory tract infection [None]
